FAERS Safety Report 25367192 (Version 6)
Quarter: 2025Q3

REPORT INFORMATION
  Report Type: Report from Study
  Country: US (occurrence: US)
  Receive Date: 20250528
  Receipt Date: 20250918
  Transmission Date: 20251021
  Serious: No
  Sender: SUNOVION
  Company Number: US-SUMITOMO PHARMA SWITZERLAND GMBH-2025SPA006029

PATIENT
  Age: 54 Year
  Sex: Male

DRUGS (11)
  1. ORGOVYX [Suspect]
     Active Substance: RELUGOLIX
     Indication: Prostate cancer
     Dosage: 360 MG, SINGLE
     Route: 048
     Dates: start: 20250508, end: 20250508
  2. ORGOVYX [Suspect]
     Active Substance: RELUGOLIX
     Dosage: 120 MG, QD
     Route: 048
     Dates: start: 20250509
  3. POISON IVY [Suspect]
     Active Substance: TOXICODENDRON RADICANS LEAF
     Indication: Product used for unknown indication
  4. ASPIRIN [Concomitant]
     Active Substance: ASPIRIN
  5. VITAMINS [Concomitant]
     Active Substance: VITAMINS
  6. DIETARY SUPPLEMENT\HERBALS\MILK THISTLE [Concomitant]
     Active Substance: MILK THISTLE
     Route: 048
  7. ESOMEPRAZOLE MAGNESIUM [Concomitant]
     Active Substance: ESOMEPRAZOLE MAGNESIUM
  8. EZETIMIBE [Concomitant]
     Active Substance: EZETIMIBE
  9. IRBESARTAN [Concomitant]
     Active Substance: IRBESARTAN
  10. VITAMIN B12 [Concomitant]
     Active Substance: CYANOCOBALAMIN
  11. VITAMIN D3 [Concomitant]
     Active Substance: CHOLECALCIFEROL

REACTIONS (16)
  - Dermatitis contact [Unknown]
  - Mania [Unknown]
  - Radiation associated pain [Unknown]
  - Post procedural diarrhoea [Unknown]
  - Decreased appetite [Unknown]
  - Anxiety [Unknown]
  - Mood swings [Unknown]
  - Depressed mood [Unknown]
  - Abdominal pain upper [Unknown]
  - Rash [Unknown]
  - Nausea [Unknown]
  - Hot flush [Unknown]
  - Constipation [Unknown]
  - Fatigue [Unknown]
  - Insomnia [Unknown]
  - Myalgia [Unknown]

NARRATIVE: CASE EVENT DATE: 20250511
